FAERS Safety Report 11032527 (Version 1)
Quarter: 2015Q2

REPORT INFORMATION
  Report Type: Spontaneous
  Country: US (occurrence: None)
  Receive Date: 20150414
  Receipt Date: 20150414
  Transmission Date: 20150821
  Serious: Yes (Other)
  Sender: FDA-Public Use
  Company Number: 001896854A

PATIENT
  Age: 68 Year
  Sex: Female

DRUGS (9)
  1. PROACTIV PLUS COMPLEXION PERFECTING HYDRATOR [Suspect]
     Active Substance: SALICYLIC ACID
     Indication: SKIN DISCOLOURATION
     Dosage: ONCE DAILY DERMAL???
     Dates: start: 20150216, end: 20150314
  2. PROACTIV PLUS SKIN PURIFYING MASK [Suspect]
     Active Substance: SULFUR
     Indication: SKIN DISCOLOURATION
     Dosage: ONCE DAILY DERMAL
     Dates: start: 20150216, end: 20150314
  3. SIMVASTATIN. [Concomitant]
     Active Substance: SIMVASTATIN
  4. VAGIFEM [Concomitant]
     Active Substance: ESTRADIOL
  5. PROACTIVPLUS SKIN SMOOTHING EXFOLIATOR [Suspect]
     Active Substance: BENZOYL PEROXIDE
     Dosage: ONCE DAILY DERMAL
     Dates: start: 20150216, end: 20150314
  6. METFORMIN [Concomitant]
     Active Substance: METFORMIN HYDROCHLORIDE
  7. PROACTIV SOLUTION BLACKHEAD DISSOLVING [Suspect]
     Active Substance: SALICYLIC ACID
     Indication: SKIN DISCOLOURATION
     Dosage: ONCE DAILY DERMAL?
     Dates: start: 20150216, end: 20150314
  8. PROACTIV PLUS PORE TARGETING TREATMENT [Suspect]
     Active Substance: BENZOYL PEROXIDE
     Dosage: ONCE DAILY DERMAL
     Dates: start: 20150216, end: 20150314
  9. TRAVOPOST [Concomitant]

REACTIONS (8)
  - Skin burning sensation [None]
  - Swelling face [None]
  - Throat tightness [None]
  - Erythema [None]
  - Application site exfoliation [None]
  - Application site pain [None]
  - Application site erythema [None]
  - Dyspnoea [None]

NARRATIVE: CASE EVENT DATE: 20150316
